FAERS Safety Report 8862148 (Version 6)
Quarter: 2013Q2

REPORT INFORMATION
  Report Type: Report from Study
  Country: US (occurrence: US)
  Receive Date: 20121026
  Receipt Date: 20130627
  Transmission Date: 20140414
  Serious: Yes (Hospitalization)
  Sender: FDA-Public Use
  Company Number: US-ACTELION-A-NJ2012-69821

PATIENT
  Age: 83 Year
  Sex: Female

DRUGS (3)
  1. TRACLEER [Suspect]
     Indication: PULMONARY ARTERIAL HYPERTENSION
     Dosage: UNK
     Route: 048
     Dates: start: 20120718
  2. ADCIRCA [Concomitant]
  3. COUMADIN [Concomitant]

REACTIONS (10)
  - Electrolyte imbalance [Unknown]
  - Asthenia [Unknown]
  - Fluid retention [Unknown]
  - Local swelling [Unknown]
  - Face oedema [Recovered/Resolved]
  - Nocturia [Unknown]
  - Abdominal discomfort [Unknown]
  - International normalised ratio decreased [Unknown]
  - Fatigue [Unknown]
  - Swelling [Unknown]
